FAERS Safety Report 8151392-1 (Version None)
Quarter: 2012Q1

REPORT INFORMATION
  Report Type: 
  Country: None (occurrence: None)
  Receive Date: 20120220
  Receipt Date: 20120209
  Transmission Date: 20120608
  Serious: Yes (Other)
  Sender: FDA-Public Use
  Company Number: US-ASTRAZENECA-2011SE78899

PATIENT
  Age: 62 Year
  Sex: Female

DRUGS (2)
  1. ANTIBIOTICS [Concomitant]
  2. SEROQUEL [Suspect]
     Indication: DEPRESSION
     Route: 048

REACTIONS (4)
  - FALL [None]
  - BREAST MASS [None]
  - PULMONARY CONGESTION [None]
  - DRUG PRESCRIBING ERROR [None]
